FAERS Safety Report 8171066 (Version 2)
Quarter: 2012Q4

REPORT INFORMATION
  Report Type: Spontaneous
  Country: GB (occurrence: None)
  Receive Date: 20110923
  Receipt Date: 20120822
  Transmission Date: 20130627
  Serious: Yes (Hospitalization)
  Sender: FDA-Public Use
  Company Number: 2011AP002021

PATIENT
  Age: 69 Year

DRUGS (10)
  1. LEFLUNOMIDE [Suspect]
     Indication: RHEUMATOID ARTHRITIS
     Dosage: PO
     Route: 048
     Dates: start: 20110715, end: 20110801
  2. CYCLIZINE (CYCLIZINE) [Concomitant]
  3. FEXOFENADINE HCL [Concomitant]
  4. FOLIC ACID [Concomitant]
  5. LEVOTHYROXINE SODIUM [Concomitant]
  6. PARACETAMOL [Concomitant]
  7. PREOTACT (PARATHYROID HORMONE) [Concomitant]
  8. SENNA [Concomitant]
  9. SIMVASTATIN [Concomitant]
  10. TRAMADOL HYDROCHLORIDE [Concomitant]

REACTIONS (3)
  - DIARRHOEA [None]
  - PYREXIA [None]
  - RASH ERYTHEMATOUS [None]
